FAERS Safety Report 7388697-8 (Version None)
Quarter: 2011Q2

REPORT INFORMATION
  Report Type: 
  Country: None (occurrence: None)
  Receive Date: 20110401
  Receipt Date: 20110328
  Transmission Date: 20111010
  Serious: Yes (Hospitalization)
  Sender: FDA-Public Use
  Company Number: CA-BRISTOL-MYERS SQUIBB COMPANY-15640253

PATIENT
  Age: 79 Year
  Sex: Male

DRUGS (5)
  1. FLOMAX [Concomitant]
  2. LIPITOR [Concomitant]
  3. COUMADIN [Suspect]
  4. INSULIN [Concomitant]
  5. AVODART [Concomitant]

REACTIONS (2)
  - INTERNATIONAL NORMALISED RATIO INCREASED [None]
  - NEPHROLITHIASIS [None]
